FAERS Safety Report 4839574-5 (Version None)
Quarter: 2005Q4

REPORT INFORMATION
  Report Type: 
  Country: None (occurrence: None)
  Receive Date: 20051128
  Receipt Date: 20051128
  Transmission Date: 20060501
  Serious: Yes (Hospitalization)
  Sender: FDA-Public Use
  Company Number: None

PATIENT
  Age: 80 Year
  Sex: Male
  Weight: 85.73 kg

DRUGS (1)
  1. WARFARIN   5 MG [Suspect]
     Indication: ATRIAL FIBRILLATION
     Dosage: 1 TABLET -AS DIRECTED PER INR-  DAILY  PO
     Route: 048
     Dates: start: 20050715, end: 20050825

REACTIONS (11)
  - BUTTOCK PAIN [None]
  - COAGULATION FACTOR VIII LEVEL INCREASED [None]
  - ECCHYMOSIS [None]
  - HAEMATOCRIT DECREASED [None]
  - HAEMOGLOBIN DECREASED [None]
  - INTERNATIONAL NORMALISED RATIO INCREASED [None]
  - MUSCLE SPASMS [None]
  - OEDEMA PERIPHERAL [None]
  - PAIN IN EXTREMITY [None]
  - RECTAL HAEMORRHAGE [None]
  - SKIN WARM [None]
